FAERS Safety Report 21610764 (Version 1)
Quarter: 2022Q4

REPORT INFORMATION
  Report Type: Spontaneous
  Country: RO (occurrence: RO)
  Receive Date: 20221117
  Receipt Date: 20221117
  Transmission Date: 20230113
  Serious: Yes (Death)
  Sender: FDA-Public Use
  Company Number: None

PATIENT
  Age: 80 Year
  Sex: Female
  Weight: 67 kg

DRUGS (2)
  1. AVASTIN [Suspect]
     Active Substance: BEVACIZUMAB
     Indication: Cervix carcinoma recurrent
     Route: 065
     Dates: start: 20220117, end: 20220623
  2. NEBIVOLOL [Concomitant]
     Active Substance: NEBIVOLOL

REACTIONS (1)
  - Small intestinal perforation [Fatal]

NARRATIVE: CASE EVENT DATE: 20220829
